FAERS Safety Report 11083663 (Version 1)
Quarter: 2015Q2

REPORT INFORMATION
  Report Type: Spontaneous
  Country: GB (occurrence: GB)
  Receive Date: 20150501
  Receipt Date: 20150501
  Transmission Date: 20150821
  Serious: Yes (Death, Life-Threatening, Other)
  Sender: FDA-Public Use
  Company Number: GB-ROXANE LABORATORIES, INC.-2015-RO-00738RO

PATIENT
  Age: 79 Year
  Sex: Female

DRUGS (4)
  1. COTRIMOXAZOLE [Concomitant]
     Active Substance: SULFAMETHOXAZOLE\TRIMETHOPRIM
     Indication: PROPHYLAXIS
     Route: 065
  2. PREDNISOLONE. [Suspect]
     Active Substance: PREDNISOLONE
     Indication: VASCULITIS NECROTISING
     Dosage: 60 MG
     Route: 048
  3. PREDNISOLONE. [Suspect]
     Active Substance: PREDNISOLONE
     Dosage: 40 MG
     Route: 048
  4. CYCLOPHOSPHAMIDE. [Suspect]
     Active Substance: CYCLOPHOSPHAMIDE
     Indication: VASCULITIS NECROTISING
     Dosage: 100 MG
     Route: 065

REACTIONS (6)
  - Sepsis [Fatal]
  - Upper gastrointestinal haemorrhage [Unknown]
  - Cytomegalovirus enteritis [Unknown]
  - Acute kidney injury [Unknown]
  - Herpes simplex oesophagitis [Unknown]
  - Shock haemorrhagic [Unknown]
